FAERS Safety Report 7047335-4 (Version None)
Quarter: 2010Q4

REPORT INFORMATION
  Report Type: 
  Country: None (occurrence: None)
  Receive Date: 20101015
  Receipt Date: 20101005
  Transmission Date: 20110411
  Serious: Yes (Other)
  Sender: FDA-Public Use
  Company Number: PHHY2010NL63681

PATIENT
  Sex: Male

DRUGS (13)
  1. ZOMETA [Suspect]
     Indication: PROSTATE CANCER METASTATIC
     Dosage: 4 MG/ 5 ML
     Route: 042
     Dates: start: 20080111, end: 20101005
  2. ZOMETA [Suspect]
     Dosage: 4 MG/ 5 ML
     Route: 042
     Dates: start: 20100830
  3. ZOMETA [Suspect]
     Dosage: 4 MG/ 5 ML
     Route: 042
     Dates: start: 20100924
  4. LIPITOR [Concomitant]
  5. PARACETAMOL [Concomitant]
  6. MOVICOLON [Concomitant]
  7. FERROFUMARAT [Concomitant]
  8. ALFACALCIDOL [Concomitant]
     Dosage: 0.25 MG, UNK
  9. METOPROLOL [Concomitant]
     Dosage: 1 MG, UNK
  10. NOVORAPID [Concomitant]
     Dosage: AS PRESCRIBED
  11. PREDNISONE [Concomitant]
     Dosage: 5 MG, UNK
  12. BICALUTAMIDE [Concomitant]
     Dosage: 50 MG, UNK
  13. ACENOCOUMAROL [Concomitant]
     Dosage: 1 MG, AS PRESCRIBED

REACTIONS (4)
  - FATIGUE [None]
  - MALAISE [None]
  - TERMINAL STATE [None]
  - WEIGHT DECREASED [None]
